FAERS Safety Report 6898533-1 (Version None)
Quarter: 2010Q3

REPORT INFORMATION
  Report Type: 
  Country: None (occurrence: None)
  Receive Date: 20100802
  Receipt Date: 20071031
  Transmission Date: 20110219
  Serious: Yes (Other)
  Sender: FDA-Public Use
  Company Number: US-PFIZER INC-2007073826

PATIENT
  Sex: Male
  Weight: 80.7 kg

DRUGS (8)
  1. LYRICA [Suspect]
     Indication: NEUROPATHY PERIPHERAL
     Dates: start: 20070614, end: 20070905
  2. LYRICA [Suspect]
     Indication: NECK PAIN
  3. AMITRIPTYLINE HYDROCHLORIDE [Concomitant]
  4. LISINOPRIL [Concomitant]
  5. OXYCONTIN [Concomitant]
  6. ALLOPURINOL [Concomitant]
  7. COLCHICINE [Concomitant]
  8. ZOLOFT [Concomitant]

REACTIONS (4)
  - HEADACHE [None]
  - HYPOAESTHESIA [None]
  - PAIN [None]
  - PAIN IN EXTREMITY [None]
